FAERS Safety Report 18812515 (Version 1)
Quarter: 2021Q1

REPORT INFORMATION
  Report Type: Spontaneous
  Country: US (occurrence: US)
  Receive Date: 20210130
  Receipt Date: 20210130
  Transmission Date: 20210419
  Serious: Yes (Other)
  Sender: FDA-Public Use
  Company Number: US-PURDUE-USA-2020-0201149

PATIENT
  Sex: Female

DRUGS (1)
  1. OXYCONTIN [Suspect]
     Active Substance: OXYCODONE HYDROCHLORIDE
     Indication: PRODUCT USED FOR UNKNOWN INDICATION
     Dosage: 25 MG, DAILY (10?05?10 MG)
     Route: 048

REACTIONS (6)
  - Mood swings [Unknown]
  - Personality change [Unknown]
  - Cardiac failure [Unknown]
  - Dyspnoea [Unknown]
  - Renal failure [Unknown]
  - Drug dependence [Unknown]
